FAERS Safety Report 16349547 (Version 16)
Quarter: 2020Q1

REPORT INFORMATION
  Report Type: Spontaneous
  Country: US (occurrence: US)
  Receive Date: 20190523
  Receipt Date: 20200218
  Transmission Date: 20200409
  Serious: No
  Sender: FDA-Public Use
  Company Number: US-ACTELION-A-US2019-190044

PATIENT
  Age: 83 Year
  Sex: Female
  Weight: 61.22 kg

DRUGS (7)
  1. SILDENAFIL CITRATE. [Concomitant]
     Active Substance: SILDENAFIL CITRATE
  2. OPSUMIT [Suspect]
     Active Substance: MACITENTAN
     Dosage: 10 MG, BID
     Route: 048
  3. UPTRAVI [Suspect]
     Active Substance: SELEXIPAG
     Dosage: 1200 MCG, BID
     Route: 048
  4. UPTRAVI [Suspect]
     Active Substance: SELEXIPAG
     Dosage: 800 MCG, BID
     Route: 048
  5. OPSUMIT [Suspect]
     Active Substance: MACITENTAN
     Indication: PULMONARY ARTERIAL HYPERTENSION
     Dosage: 10 MG, QD
     Route: 048
  6. UPTRAVI [Suspect]
     Active Substance: SELEXIPAG
     Indication: PULMONARY ARTERIAL HYPERTENSION
     Dosage: 1600 MCG, BID
     Route: 048
     Dates: start: 201908
  7. UPTRAVI [Suspect]
     Active Substance: SELEXIPAG
     Dosage: 600 MCG, BID
     Route: 048
     Dates: start: 20190612

REACTIONS (30)
  - Respiratory disorder [Not Recovered/Not Resolved]
  - Dizziness [Unknown]
  - Asthenia [Recovering/Resolving]
  - Productive cough [Unknown]
  - Hypertension [Recovering/Resolving]
  - Sinusitis [Unknown]
  - Nasal discharge discolouration [Unknown]
  - Nasal congestion [Unknown]
  - Epistaxis [Unknown]
  - Malaise [Unknown]
  - Arthralgia [Recovering/Resolving]
  - Hypoacusis [Unknown]
  - Paranasal sinus hypersecretion [Unknown]
  - Pain in extremity [Recovering/Resolving]
  - Tremor [Recovering/Resolving]
  - Heart rate increased [Recovering/Resolving]
  - Adverse event [Unknown]
  - Decreased interest [Unknown]
  - Wrong dose [Unknown]
  - Fatigue [Unknown]
  - Nausea [Unknown]
  - Blood glucose decreased [Recovering/Resolving]
  - Mood altered [Unknown]
  - Oropharyngeal pain [Unknown]
  - Headache [Unknown]
  - Diarrhoea [Unknown]
  - Myalgia [Unknown]
  - Neck pain [Recovering/Resolving]
  - Pain [Not Recovered/Not Resolved]
  - Bronchitis [Unknown]

NARRATIVE: CASE EVENT DATE: 20190606
